FAERS Safety Report 9672125 (Version 3)
Quarter: 2024Q4

REPORT INFORMATION
  Report Type: Spontaneous
  Country: AU (occurrence: AU)
  Receive Date: 20131106
  Receipt Date: 20241021
  Transmission Date: 20250114
  Serious: Yes (Other)
  Sender: SANOFI AVENTIS
  Company Number: AU-SA-2013SA113011

PATIENT
  Age: 53 Year
  Sex: Female

DRUGS (3)
  1. ALEMTUZUMAB [Suspect]
     Active Substance: ALEMTUZUMAB
     Indication: Multiple sclerosis
     Dosage: 12 MG,QD
  2. ALEMTUZUMAB [Suspect]
     Active Substance: ALEMTUZUMAB
     Dosage: 12 MG,QD
  3. INTERFERON BETA [Concomitant]
     Active Substance: INTERFERON BETA
     Indication: Multiple sclerosis
     Dosage: UNK

REACTIONS (4)
  - Graves^ disease [Recovering/Resolving]
  - Hyperthyroidism [Recovering/Resolving]
  - Goitre [Recovering/Resolving]
  - Hypothyroidism [Recovering/Resolving]
